FAERS Safety Report 22916679 (Version 12)
Quarter: 2024Q2

REPORT INFORMATION
  Report Type: Spontaneous
  Country: US (occurrence: US)
  Receive Date: 20230907
  Receipt Date: 20240402
  Transmission Date: 20240716
  Serious: No
  Sender: FDA-Public Use
  Company Number: US-BIOGEN-2023BI01224686

PATIENT
  Age: 46 Year
  Sex: Female

DRUGS (1)
  1. TYSABRI [Suspect]
     Active Substance: NATALIZUMAB
     Indication: Multiple sclerosis
     Route: 050
     Dates: start: 20200616

REACTIONS (14)
  - Product dose omission issue [Unknown]
  - Stress [Not Recovered/Not Resolved]
  - Insomnia [Not Recovered/Not Resolved]
  - Sinusitis [Not Recovered/Not Resolved]
  - Paraesthesia [Unknown]
  - Memory impairment [Unknown]
  - Reading disorder [Unknown]
  - Nasopharyngitis [Unknown]
  - Dermatitis contact [Unknown]
  - Thinking abnormal [Unknown]
  - Aphasia [Unknown]
  - Pain in extremity [Not Recovered/Not Resolved]
  - Fatigue [Not Recovered/Not Resolved]
  - Influenza [Unknown]

NARRATIVE: CASE EVENT DATE: 20231001
